FAERS Safety Report 24628893 (Version 2)
Quarter: 2024Q4

REPORT INFORMATION
  Report Type: Spontaneous
  Country: US (occurrence: US)
  Receive Date: 20241118
  Receipt Date: 20241205
  Transmission Date: 20250114
  Serious: Yes (Hospitalization, Other)
  Sender: APELLIS PHARMACEUTICALS
  Company Number: US-APELLIS-2024-APL-0001498

PATIENT
  Weight: 69.84 kg

DRUGS (4)
  1. SYFOVRE [Suspect]
     Active Substance: PEGCETACOPLAN
     Indication: Macular degeneration
     Route: 031
     Dates: start: 20230623
  2. CERTOLIZUMAB PEGOL [Suspect]
     Active Substance: CERTOLIZUMAB PEGOL
     Indication: Rheumatoid arthritis
     Dosage: 400 MG EV 2 WEEKS (QOW)
     Route: 058
     Dates: start: 20220808
  3. CERTOLIZUMAB PEGOL [Suspect]
     Active Substance: CERTOLIZUMAB PEGOL
     Dosage: 400 MG EV 4 WEEKS
     Route: 058
     Dates: end: 20230628
  4. CERTOLIZUMAB PEGOL [Suspect]
     Active Substance: CERTOLIZUMAB PEGOL
     Dosage: 400 MILLIGRAMS
     Route: 058
     Dates: end: 20230704

REACTIONS (8)
  - Headache [Not Recovered/Not Resolved]
  - Therapeutic response shortened [Unknown]
  - Subcutaneous abscess [Recovered/Resolved]
  - COVID-19 [Recovered/Resolved]
  - Cough [Recovered/Resolved]
  - Herpes zoster [Recovered/Resolved]
  - Pyrexia [Recovered/Resolved]
  - SARS-CoV-2 test positive [Recovered/Resolved]

NARRATIVE: CASE EVENT DATE: 20220912
